FAERS Safety Report 21207231 (Version 1)
Quarter: 2022Q3

REPORT INFORMATION
  Report Type: Spontaneous
  Country: CN (occurrence: None)
  Receive Date: 20220812
  Receipt Date: 20220812
  Transmission Date: 20221026
  Serious: Yes (Hospitalization)
  Sender: FDA-Public Use
  Company Number: CN-ROCHE-3157383

PATIENT
  Age: 70 Year
  Sex: Male
  Weight: 61 kg

DRUGS (8)
  1. MABTHERA [Suspect]
     Active Substance: RITUXIMAB
     Indication: Testicular mass
     Route: 041
     Dates: start: 20220720, end: 20220720
  2. MABTHERA [Suspect]
     Active Substance: RITUXIMAB
     Route: 041
     Dates: start: 20220720, end: 20220720
  3. CYCLOPHOSPHAMIDE [Suspect]
     Active Substance: CYCLOPHOSPHAMIDE
     Indication: Testicular mass
     Route: 042
     Dates: start: 20220721, end: 20220721
  4. EPIRUBICIN HYDROCHLORIDE [Suspect]
     Active Substance: EPIRUBICIN HYDROCHLORIDE
     Indication: Testicular mass
     Route: 041
     Dates: start: 20220721, end: 20220721
  5. VINDESINE SULFATE [Suspect]
     Active Substance: VINDESINE SULFATE
     Indication: Testicular mass
     Route: 042
     Dates: start: 20220721, end: 20220721
  6. ETOPOSIDE [Suspect]
     Active Substance: ETOPOSIDE
     Indication: Testicular mass
     Route: 041
     Dates: start: 20220721, end: 20220723
  7. RECOMBINANT HUMAN GRANULOCYTE STIMULATING FACTOR (UNK INGREDIENTS) [Concomitant]
     Dosage: IH
     Dates: start: 20220727, end: 20220801
  8. THROMBOPOIETIN [Concomitant]
     Active Substance: THROMBOPOIETIN
     Dates: start: 20220730

REACTIONS (2)
  - Myelosuppression [Recovering/Resolving]
  - Off label use [Unknown]

NARRATIVE: CASE EVENT DATE: 20220727
